FAERS Safety Report 7983988-1 (Version None)
Quarter: 2011Q4

REPORT INFORMATION
  Report Type: 
  Country: None (occurrence: None)
  Receive Date: 20111216
  Receipt Date: 20111205
  Transmission Date: 20120403
  Serious: Yes (Hospitalization)
  Sender: FDA-Public Use
  Company Number: TR-NOVOPROD-341034

PATIENT

DRUGS (2)
  1. METHYLPREDNISOLONE [Concomitant]
     Dosage: 1MG/KG/DAY
  2. NOVOSEVEN [Suspect]
     Indication: HAEMORRHAGE
     Dosage: 90 A?G/KG, UNK
     Route: 042

REACTIONS (1)
  - HEMIPLEGIA [None]
